FAERS Safety Report 4275095-9 (Version None)
Quarter: 2004Q1

REPORT INFORMATION
  Report Type: 
  Country: None (occurrence: None)
  Receive Date: 20040109
  Receipt Date: 20031224
  Transmission Date: 20041129
  Serious: No
  Sender: FDA-Public Use
  Company Number: 234639

PATIENT
  Age: 21 Year
  Sex: Male
  Weight: 71 kg

DRUGS (6)
  1. NOVOSEVEN [Suspect]
     Indication: ABDOMINAL INJURY
     Dosage: 90 UG/KG, INTRAVENOUS
     Route: 042
     Dates: start: 20030906, end: 20030907
  2. AUGMENTIN [Concomitant]
  3. ACUPAN [Concomitant]
  4. PERFALGAN [Concomitant]
  5. RISPERDAL [Concomitant]
  6. NEXIUM [Concomitant]

REACTIONS (2)
  - CATHETER SITE RELATED REACTION [None]
  - DEEP VEIN THROMBOSIS [None]
